FAERS Safety Report 10522590 (Version 1)
Quarter: 2014Q4

REPORT INFORMATION
  Report Type: Spontaneous
  Country: US (occurrence: US)
  Receive Date: 20141016
  Receipt Date: 20141016
  Transmission Date: 20150528
  Serious: No
  Sender: FDA-Public Use
  Company Number: US-BAYER-2014-148770

PATIENT
  Age: 18 Year
  Sex: Female

DRUGS (1)
  1. BEYAZ [Suspect]
     Active Substance: DROSPIRENONE\ETHINYL ESTRADIOL\LEVOMEFOLATE CALCIUM
     Indication: ACNE
     Dosage: UNK
     Route: 048
     Dates: start: 20140930

REACTIONS (2)
  - Photophobia [None]
  - Headache [None]

NARRATIVE: CASE EVENT DATE: 20141006
